FAERS Safety Report 7637202-7 (Version None)
Quarter: 2011Q3

REPORT INFORMATION
  Report Type: 
  Country: None (occurrence: None)
  Receive Date: 20110726
  Receipt Date: 20110712
  Transmission Date: 20111222
  Serious: Yes (Hospitalization, Other)
  Sender: FDA-Public Use
  Company Number: PHHY2011US43434

PATIENT
  Sex: Female

DRUGS (16)
  1. MAGNESIUM [Concomitant]
  2. COLACE [Concomitant]
  3. INSULIN [Concomitant]
  4. ALLOPURINOL [Concomitant]
  5. ANAGRELIDE HCL [Concomitant]
  6. LORAZEPAM [Concomitant]
  7. CITALOPRAM HYDROBROMIDE [Concomitant]
  8. GLEEVEC [Suspect]
     Indication: CHRONIC MYELOID LEUKAEMIA
     Dosage: 600 MG, QD
     Route: 048
     Dates: start: 20110201, end: 20110515
  9. ASPIRIN [Concomitant]
  10. AMLODIPINE BESYLATE [Concomitant]
  11. CLONIDINE [Concomitant]
  12. METOPROLOL TARTRATE [Concomitant]
  13. VALPROIC ACID [Concomitant]
     Dosage: 250 MG, DAILY
  14. ONDANSETRON [Concomitant]
  15. DOCUSATE [Concomitant]
  16. LISINOPRIL [Concomitant]

REACTIONS (25)
  - ENCEPHALOPATHY [None]
  - POVERTY OF SPEECH [None]
  - URINARY TRACT INFECTION [None]
  - ACUTE PRERENAL FAILURE [None]
  - DIZZINESS [None]
  - HYPERREFLEXIA [None]
  - ASTHENIA [None]
  - WEIGHT DECREASED [None]
  - NAUSEA [None]
  - HYPERNATRAEMIA [None]
  - HYPOTENSION [None]
  - DEPRESSED LEVEL OF CONSCIOUSNESS [None]
  - VISUAL ACUITY REDUCED [None]
  - HYPOVENTILATION [None]
  - DEHYDRATION [None]
  - VOMITING [None]
  - MENTAL STATUS CHANGES [None]
  - GAIT DISTURBANCE [None]
  - VERTIGO [None]
  - CONFUSIONAL STATE [None]
  - RENAL FAILURE ACUTE [None]
  - ENCEPHALITIS [None]
  - TACHYCARDIA [None]
  - PARAESTHESIA [None]
  - DEPRESSION [None]
